FAERS Safety Report 4914104-8 (Version None)
Quarter: 2006Q1

REPORT INFORMATION
  Report Type: 
  Country: None (occurrence: None)
  Receive Date: 20060210
  Receipt Date: 20060203
  Transmission Date: 20060701
  Serious: Yes (Hospitalization)
  Sender: FDA-Public Use
  Company Number: A0592527A

PATIENT
  Sex: Female

DRUGS (1)
  1. LOTRONEX [Suspect]
     Indication: DRUG USE FOR UNKNOWN INDICATION
     Dosage: 1 MG / PER DAY / ORAL
     Route: 048

REACTIONS (1)
  - COLITIS ULCERATIVE [None]
